FAERS Safety Report 8813147 (Version 1)
Quarter: 2012Q4

REPORT INFORMATION
  Report Type: 
  Country: US (occurrence: US)
  Receive Date: 20120927
  Receipt Date: 20120927
  Transmission Date: 20130627
  Serious: No
  Sender: FDA-Public Use
  Company Number: US-AMGEN-USASP2012034332

PATIENT
  Age: 63 Year
  Sex: Female

DRUGS (3)
  1. PROLIA [Suspect]
     Indication: OSTEOPOROSIS POSTMENOPAUSAL
     Dosage: 60 mg, q6mo
     Dates: start: 201112
  2. AVASTIN [Concomitant]
     Indication: MACULAR DEGENERATION
     Dosage: UNK UNK, q10wk
  3. MULTIVITAMIN [Concomitant]
     Dosage: UNK

REACTIONS (2)
  - Toothache [Not Recovered/Not Resolved]
  - Fall [Recovered/Resolved]
